FAERS Safety Report 16994294 (Version 1)
Quarter: 2019Q4

REPORT INFORMATION
  Report Type: Spontaneous
  Country: US (occurrence: US)
  Receive Date: 20191105
  Receipt Date: 20191105
  Transmission Date: 20200122
  Serious: Yes (Death, Life-Threatening, Hospitalization, Other)
  Sender: FDA-Public Use
  Company Number: US-SCIEGEN PHARMACEUTICALS INC-2019SCILIT00330

PATIENT
  Age: 39 Year
  Sex: Female

DRUGS (7)
  1. NOREPINEPHRINE. [Concomitant]
     Active Substance: NOREPINEPHRINE
  2. METHOTREXATE. [Interacting]
     Active Substance: METHOTREXATE
  3. DEXAMETHASONE. [Interacting]
     Active Substance: DEXAMETHASONE
  4. CEFTRIAXONE. [Concomitant]
     Active Substance: CEFTRIAXONE
  5. VANCOMYCIN [Concomitant]
     Active Substance: VANCOMYCIN
  6. LAMOTRIGINE TABLETS [Suspect]
     Active Substance: LAMOTRIGINE
  7. ETOPOSIDE. [Interacting]
     Active Substance: ETOPOSIDE

REACTIONS (3)
  - Haemophagocytic lymphohistiocytosis [Fatal]
  - Respiratory depression [Unknown]
  - Septic shock [Fatal]
